FAERS Safety Report 6260682-9 (Version None)
Quarter: 2009Q3

REPORT INFORMATION
  Report Type: 
  Country: None (occurrence: None)
  Receive Date: 20090706
  Receipt Date: 20090623
  Transmission Date: 20100115
  Serious: Yes (Other)
  Sender: FDA-Public Use
  Company Number: ADE2009-0685

PATIENT
  Age: 41 Year
  Sex: Male

DRUGS (2)
  1. GABAPENTIN [Suspect]
     Dosage: 900MG - ORAL
     Route: 048
  2. ZONISAMIDE [Suspect]
     Indication: EPILEPSY
     Dosage: 25-200MG - DAILY - ORAL
     Route: 048
     Dates: start: 20080605

REACTIONS (3)
  - DRUG INTERACTION [None]
  - HEARING DISABILITY [None]
  - SPEECH DISORDER [None]
